FAERS Safety Report 6004562-2 (Version None)
Quarter: 2008Q4

REPORT INFORMATION
  Report Type: 
  Country: None (occurrence: None)
  Receive Date: 20081216
  Receipt Date: 20081212
  Transmission Date: 20090506
  Serious: Yes (Hospitalization, Other)
  Sender: FDA-Public Use
  Company Number: KR-BRISTOL-MYERS SQUIBB COMPANY-14402820

PATIENT
  Age: 54 Year
  Sex: Male
  Weight: 71 kg

DRUGS (3)
  1. CISPLATIN [Suspect]
     Indication: GASTRIC CANCER
     Dosage: 110 MG PER DAY (60 MG/M2 1 IN 21 D). RECEIVED CUMULATIVE DOSE OF 330 MG,11NOV08 CYC 4 DOSE REDUCED.
     Route: 042
     Dates: start: 20080731, end: 20080731
  2. SUNITINIB MALATE [Suspect]
     Indication: GASTRIC CANCER
     Dosage: 37.5 MG PER DAY (D1-D14 EVERY 21 DAYS). RECD CUMULATIVE DOSE OF 1425 MG.11NOV08, CYC4DOSE REDUCED
     Route: 048
     Dates: start: 20080731
  3. CAPECITABINE [Suspect]
     Indication: GASTRIC CANCER
     Dosage: 2900 MG/DAY(1600 MG/M2 D1-D14 EVERY21 DAYS).CUMULATIVE DOSE OF 110200 MG,11NOV08,CYC4DOSE REDUCED.
     Route: 048
     Dates: start: 20080731

REACTIONS (1)
  - PULMONARY EMBOLISM [None]
